FAERS Safety Report 21648425 (Version 3)
Quarter: 2023Q2

REPORT INFORMATION
  Report Type: Report from Study
  Country: US (occurrence: US)
  Receive Date: 20221128
  Receipt Date: 20230529
  Transmission Date: 20230722
  Serious: Yes (Hospitalization)
  Sender: FDA-Public Use
  Company Number: US-002147023-NVSC2022US263647

PATIENT
  Age: 52 Year
  Sex: Female
  Weight: 97.52 kg

DRUGS (1)
  1. PIQRAY [Suspect]
     Active Substance: ALPELISIB
     Indication: Breast cancer metastatic
     Dosage: 200 MG, BID
     Route: 048
     Dates: start: 20220531, end: 20220718

REACTIONS (4)
  - Blood glucose increased [Recovered/Resolved]
  - Nausea [Unknown]
  - Fatigue [Unknown]
  - Extra dose administered [Unknown]

NARRATIVE: CASE EVENT DATE: 20220531
